FAERS Safety Report 17631671 (Version 1)
Quarter: 2020Q2

REPORT INFORMATION
  Report Type: Spontaneous
  Country: US (occurrence: US)
  Receive Date: 20200403
  Receipt Date: 20200403
  Transmission Date: 20200713
  Serious: Yes (Hospitalization)
  Sender: FDA-Public Use
  Company Number: None

PATIENT
  Age: 47 Year
  Sex: Female

DRUGS (2)
  1. EPCLUSA [Suspect]
     Active Substance: SOFOSBUVIR\VELPATASVIR
     Indication: CHRONIC HEPATITIS C
     Route: 048
  2. MORPHINE SUL [Concomitant]
     Active Substance: MORPHINE SULFATE

REACTIONS (4)
  - Headache [None]
  - Fatigue [None]
  - Road traffic accident [None]
  - Limb crushing injury [None]

NARRATIVE: CASE EVENT DATE: 202003
